FAERS Safety Report 20882707 (Version 1)
Quarter: 2022Q2

REPORT INFORMATION
  Report Type: Spontaneous
  Country: US (occurrence: US)
  Receive Date: 20220527
  Receipt Date: 20220527
  Transmission Date: 20220721
  Serious: No
  Sender: FDA-Public Use
  Company Number: US-AMNEAL PHARMACEUTICALS-2021-AMRX-04895

PATIENT
  Sex: Female
  Weight: 70.76 kg

DRUGS (1)
  1. MOMETASONE FUROATE [Suspect]
     Active Substance: MOMETASONE FUROATE
     Indication: Asthma
     Dosage: ONE SPRAY IN EACH NOSTRIL 2X/DAY
     Route: 045
     Dates: start: 2021, end: 2021

REACTIONS (4)
  - Unevaluable event [Not Recovered/Not Resolved]
  - Oral disorder [Unknown]
  - Neck pain [Unknown]
  - Product substitution issue [Unknown]

NARRATIVE: CASE EVENT DATE: 20210101
